FAERS Safety Report 21510876 (Version 7)
Quarter: 2023Q1

REPORT INFORMATION
  Report Type: Spontaneous
  Country: JP (occurrence: JP)
  Receive Date: 20221026
  Receipt Date: 20230322
  Transmission Date: 20230417
  Serious: Yes (Life-Threatening, Hospitalization, Other)
  Sender: FDA-Public Use
  Company Number: JP-NOVARTISPH-NVSJ2022JP099597

PATIENT
  Age: 74 Year
  Sex: Male
  Weight: 35 kg

DRUGS (1)
  1. TASIGNA [Suspect]
     Active Substance: NILOTINIB
     Indication: Chronic myeloid leukaemia
     Dosage: 150 MG
     Route: 048
     Dates: start: 20210728, end: 20220909

REACTIONS (7)
  - Diffuse large B-cell lymphoma [Recovering/Resolving]
  - Decreased appetite [Unknown]
  - Pyrexia [Unknown]
  - Second primary malignancy [Recovering/Resolving]
  - Bronchopulmonary aspergillosis [Recovering/Resolving]
  - Chronic myeloid leukaemia [Unknown]
  - Malignant neoplasm progression [Unknown]

NARRATIVE: CASE EVENT DATE: 20220909
